FAERS Safety Report 5657220-8 (Version None)
Quarter: 2008Q1

REPORT INFORMATION
  Report Type: 
  Country: None (occurrence: None)
  Receive Date: 20080219
  Receipt Date: 20071119
  Transmission Date: 20080703
  Serious: No
  Sender: FDA-Public Use
  Company Number: WAES 0711USA04129

PATIENT
  Sex: Male

DRUGS (3)
  1. JANUVIA [Suspect]
     Dosage: PO
     Route: 048
  2. METFORMIN [Concomitant]
  3. PIOGLITAZONE HCL [Concomitant]

REACTIONS (1)
  - GASTROOESOPHAGEAL REFLUX DISEASE [None]
